FAERS Safety Report 8422534-5 (Version None)
Quarter: 2012Q2

REPORT INFORMATION
  Report Type: 
  Country: None (occurrence: None)
  Receive Date: 20120608
  Receipt Date: 20120524
  Transmission Date: 20120825
  Serious: No
  Sender: FDA-Public Use
  Company Number: US-ASTRAZENECA-2011SE62650

PATIENT
  Age: 54 Year
  Sex: Male
  Weight: 74.8 kg

DRUGS (2)
  1. SEROQUEL XR [Suspect]
     Indication: SCHIZOPHRENIA
     Route: 048
     Dates: start: 20110801
  2. SEROQUEL XR [Suspect]
     Route: 048

REACTIONS (5)
  - GAIT DISTURBANCE [None]
  - ARTHRALGIA [None]
  - MUSCLE SPASMS [None]
  - JOINT STIFFNESS [None]
  - IRREGULAR SLEEP PHASE [None]
